FAERS Safety Report 4760003-4 (Version None)
Quarter: 2005Q3

REPORT INFORMATION
  Report Type: 
  Country: None (occurrence: None)
  Receive Date: 20050902
  Receipt Date: 20050823
  Transmission Date: 20060218
  Serious: Yes (Other)
  Sender: FDA-Public Use
  Company Number: PL-AMGEN-UK147454

PATIENT
  Sex: Female

DRUGS (3)
  1. DARBEPOETIN ALFA [Suspect]
     Indication: DIALYSIS
     Route: 042
     Dates: start: 20050713, end: 20050817
  2. CLONIDINE [Concomitant]
     Route: 065
  3. NSAID [Concomitant]
     Route: 065

REACTIONS (3)
  - ARTHRITIS [None]
  - HYPERTENSION [None]
  - HYPERTROPHY [None]
